FAERS Safety Report 17374629 (Version 1)
Quarter: 2020Q1

REPORT INFORMATION
  Report Type: Spontaneous
  Country: US (occurrence: US)
  Receive Date: 20200204
  Receipt Date: 20200204
  Transmission Date: 20200409
  Serious: Yes (Life-Threatening, Hospitalization)
  Sender: FDA-Public Use
  Company Number: None

PATIENT
  Age: 78 Year
  Sex: Male

DRUGS (1)
  1. ALTEPLASE. [Suspect]
     Active Substance: ALTEPLASE

REACTIONS (4)
  - Hemiparesis [None]
  - Cerebral haemorrhage [None]
  - Aphasia [None]
  - Cerebral infarction [None]

NARRATIVE: CASE EVENT DATE: 20190801
